FAERS Safety Report 24856105 (Version 2)
Quarter: 2025Q1

REPORT INFORMATION
  Report Type: Spontaneous
  Country: US (occurrence: US)
  Receive Date: 20250117
  Receipt Date: 20250326
  Transmission Date: 20250409
  Serious: Yes (Other)
  Sender: BAYER HEALTHCARE PHARMACEUTICALS INC.
  Company Number: US-BAYER-2025A005690

PATIENT
  Age: 63 Year
  Sex: Male

DRUGS (2)
  1. JIVI [Suspect]
     Active Substance: DAMOCTOCOG ALFA PEGOL
     Indication: Haemorrhage
  2. JIVI [Suspect]
     Active Substance: DAMOCTOCOG ALFA PEGOL
     Indication: Haemorrhage

REACTIONS (5)
  - Traumatic haemorrhage [None]
  - Haemarthrosis [None]
  - Traumatic haemorrhage [None]
  - Limb injury [None]
  - Limb injury [None]

NARRATIVE: CASE EVENT DATE: 20241201
